FAERS Safety Report 7827771-6 (Version None)
Quarter: 2011Q4

REPORT INFORMATION
  Report Type: 
  Country: None (occurrence: None)
  Receive Date: 20111020
  Receipt Date: 20111013
  Transmission Date: 20120403
  Serious: Yes (Death)
  Sender: FDA-Public Use
  Company Number: US-SANOFI-AVENTIS-2011SA068320

PATIENT

DRUGS (1)
  1. MULTAQ [Suspect]
     Route: 048
     Dates: end: 20110201

REACTIONS (1)
  - DEATH [None]
